FAERS Safety Report 4950672-8 (Version None)
Quarter: 2006Q1

REPORT INFORMATION
  Report Type: 
  Country: None (occurrence: None)
  Receive Date: 20060321
  Receipt Date: 20060321
  Transmission Date: 20060701
  Serious: Yes (Other)
  Sender: FDA-Public Use
  Company Number: None

PATIENT
  Age: 52 Year
  Sex: Female
  Weight: 63.5036 kg

DRUGS (2)
  1. EFFEXOR XR [Suspect]
     Indication: MAJOR DEPRESSION
     Dosage: 300, 225, 150, 75, 37.5 1 X DAY PO
     Route: 048
  2. EFFEXOR XR [Suspect]
     Indication: POST-TRAUMATIC STRESS DISORDER
     Dosage: 300, 225, 150, 75, 37.5 1 X DAY PO
     Route: 048

REACTIONS (12)
  - BLOOD PRESSURE INCREASED [None]
  - CHILLS [None]
  - CRYING [None]
  - DRUG WITHDRAWAL SYNDROME [None]
  - EMOTIONAL DISORDER [None]
  - FATIGUE [None]
  - HEART RATE INCREASED [None]
  - IRRITABILITY [None]
  - MEMORY IMPAIRMENT [None]
  - NERVOUSNESS [None]
  - PALPITATIONS [None]
  - TINNITUS [None]
